FAERS Safety Report 6153608-X (Version None)
Quarter: 2009Q2

REPORT INFORMATION
  Report Type: 
  Country: None (occurrence: None)
  Receive Date: 20090413
  Receipt Date: 20090401
  Transmission Date: 20091009
  Serious: Yes (Other)
  Sender: FDA-Public Use
  Company Number: PL-PFIZER INC-2009196211

PATIENT

DRUGS (1)
  1. DOSTINEX [Suspect]

REACTIONS (5)
  - CARDIAC DISORDER [None]
  - NERVOUS SYSTEM DISORDER [None]
  - SYNCOPE [None]
  - VISUAL FIELD DEFECT [None]
  - WEIGHT INCREASED [None]
